FAERS Safety Report 6018003-2 (Version None)
Quarter: 2008Q4

REPORT INFORMATION
  Report Type: 
  Country: None (occurrence: None)
  Receive Date: 20081223
  Receipt Date: 20081222
  Transmission Date: 20090506
  Serious: Yes (Other)
  Sender: FDA-Public Use
  Company Number: B0546107A

PATIENT
  Age: 70 Year
  Sex: Female

DRUGS (5)
  1. SAWACILLIN [Suspect]
     Dosage: 750MG PER DAY
     Route: 048
     Dates: start: 20081027, end: 20081101
  2. PL [Suspect]
     Dosage: 3G PER DAY
     Route: 048
     Dates: start: 20081027, end: 20081102
  3. CONIEL [Concomitant]
     Indication: HYPERTENSION
     Route: 048
     Dates: start: 20070313
  4. BENET [Concomitant]
     Indication: OSTEOPOROSIS
     Dates: start: 20071024
  5. MEVALOTIN [Concomitant]
     Route: 048
     Dates: start: 20031101

REACTIONS (6)
  - ANOREXIA [None]
  - ECZEMA [None]
  - OEDEMA [None]
  - PAIN [None]
  - PYREXIA [None]
  - RASH GENERALISED [None]
